FAERS Safety Report 11425114 (Version 2)
Quarter: 2015Q3

REPORT INFORMATION
  Report Type: Spontaneous
  Country: US (occurrence: US)
  Receive Date: 20150821
  Receipt Date: 20150903
  Transmission Date: 20151125
  Serious: No
  Sender: FDA-Public Use
  Company Number: US-ELI_LILLY_AND_COMPANY-US201104002512

PATIENT
  Sex: Female

DRUGS (3)
  1. MICRONASE [Concomitant]
     Active Substance: GLYBURIDE
     Dosage: UNK
     Dates: start: 2008
  2. HUMULIN 70/30 [Suspect]
     Active Substance: INSULIN HUMAN
     Indication: DIABETES MELLITUS
     Dosage: 32 U, BID
     Dates: start: 201002
  3. HUMALOG [Suspect]
     Active Substance: INSULIN LISPRO
     Indication: DIABETES MELLITUS
     Dosage: 15 U, EACH EVENING
     Dates: start: 201002

REACTIONS (6)
  - Shoulder operation [Recovered/Resolved]
  - Incorrect dose administered [Recovered/Resolved]
  - Cyst removal [Recovered/Resolved]
  - Blood glucose increased [Recovered/Resolved]
  - Diabetes mellitus inadequate control [Recovered/Resolved]
  - Bunion operation [Recovered/Resolved]

NARRATIVE: CASE EVENT DATE: 2010
